FAERS Safety Report 11251457 (Version 1)
Quarter: 2015Q3

REPORT INFORMATION
  Report Type: Spontaneous
  Country: US (occurrence: US)
  Receive Date: 20150708
  Receipt Date: 20150708
  Transmission Date: 20151125
  Serious: No
  Sender: FDA-Public Use
  Company Number: US-ELI_LILLY_AND_COMPANY-US201203000276

PATIENT
  Age: 18 Year
  Sex: Female

DRUGS (1)
  1. PROZAC [Suspect]
     Active Substance: FLUOXETINE HYDROCHLORIDE
     Indication: DEPRESSION
     Dosage: 20 UG, BID

REACTIONS (6)
  - Insomnia [Unknown]
  - Thyroid disorder [Unknown]
  - Eating disorder [Unknown]
  - Psychomotor hyperactivity [Unknown]
  - Increased appetite [Unknown]
  - Weight decreased [Unknown]
